FAERS Safety Report 8799727 (Version 1)
Quarter: 2012Q4

REPORT INFORMATION
  Report Type: Report from Study
  Country: US (occurrence: US)
  Receive Date: 20120919
  Receipt Date: 20120919
  Transmission Date: 20130627
  Serious: Yes (Hospitalization, Other)
  Sender: FDA-Public Use
  Company Number: US-BIOGENIDEC-2012BI020224

PATIENT
  Age: 25 Year
  Sex: Female
  Weight: 46 kg

DRUGS (8)
  1. TYSABRI [Suspect]
     Indication: CROHN^S DISEASE
     Route: 042
     Dates: start: 20111019
  2. ZOFRAN [Concomitant]
     Indication: NAUSEA
     Route: 048
  3. ZOFRAN [Concomitant]
     Indication: VOMITING
     Route: 048
  4. VALTREX [Concomitant]
     Indication: HERPES SIMPLEX
     Route: 048
     Dates: start: 20111204, end: 20111221
  5. PREDNISONE [Concomitant]
     Route: 048
  6. OMEPRAZOLE [Concomitant]
     Indication: GASTROOESOPHAGEAL REFLUX DISEASE
     Route: 048
  7. LUTERA-28 [Concomitant]
     Indication: ORAL CONTRACEPTION
     Route: 048
  8. LOMOTIL [Concomitant]

REACTIONS (1)
  - Skin candida [Recovered/Resolved]
